FAERS Safety Report 8824494 (Version 2)
Quarter: 2012Q4

REPORT INFORMATION
  Report Type: 
  Country: US (occurrence: US)
  Receive Date: 20121004
  Receipt Date: 20121115
  Transmission Date: 20130627
  Serious: No
  Sender: FDA-Public Use
  Company Number: US-B.I. PHARMACEUTICALS,INC./RIDGEFIELD-2012-BP-23461BP

PATIENT
  Sex: Male
  Weight: 84 kg

DRUGS (10)
  1. SPIRIVA [Suspect]
     Indication: CHRONIC OBSTRUCTIVE PULMONARY DISEASE
     Dosage: 18 mcg
     Route: 055
     Dates: start: 201205, end: 201209
  2. SPIRIVA [Suspect]
     Indication: ASTHMA
  3. OMEPRAZOLE [Concomitant]
     Indication: GASTROOESOPHAGEAL REFLUX DISEASE
     Route: 048
  4. ASPIRIN [Concomitant]
     Dosage: 81 mg
     Route: 048
  5. DIOVAN [Concomitant]
     Indication: HYPERTENSION
     Route: 048
  6. DOXAZOSIN [Concomitant]
     Indication: HYPERTENSION
     Route: 048
  7. TUMS [Concomitant]
  8. LUMIGAN [Concomitant]
     Indication: GLAUCOMA
  9. CALAN [Concomitant]
     Indication: CARDIAC DISORDER
     Route: 048
  10. SIMVASTATIN [Concomitant]
     Indication: BLOOD CHOLESTEROL INCREASED
     Route: 048

REACTIONS (2)
  - Dry mouth [Not Recovered/Not Resolved]
  - Toothache [Recovered/Resolved]
